FAERS Safety Report 10036846 (Version 1)
Quarter: 2014Q1

REPORT INFORMATION
  Report Type: Spontaneous
  Country: US (occurrence: US)
  Receive Date: 20140326
  Receipt Date: 20140326
  Transmission Date: 20141002
  Serious: No
  Sender: FDA-Public Use
  Company Number: US-BIOGENIDEC-2014BI025260

PATIENT
  Age: 54 Year
  Sex: Female

DRUGS (4)
  1. TECFIDERA [Suspect]
     Indication: MULTIPLE SCLEROSIS
     Route: 048
     Dates: start: 20130611
  2. PRAVASTATIN SODIUM [Concomitant]
  3. DICLOFENAC SODIUM [Concomitant]
  4. SYNTHROID [Concomitant]

REACTIONS (1)
  - Muscle twitching [Not Recovered/Not Resolved]
